FAERS Safety Report 10267015 (Version 1)
Quarter: 2014Q2

REPORT INFORMATION
  Report Type: Spontaneous
  Country: US (occurrence: None)
  Receive Date: 20140626
  Receipt Date: 20140626
  Transmission Date: 20141212
  Serious: Yes (Other)
  Sender: FDA-Public Use
  Company Number: None

PATIENT
  Age: 29 Year
  Sex: Male
  Weight: 74.84 kg

DRUGS (3)
  1. METHOTREXATE [Suspect]
     Indication: CROHN^S DISEASE
     Dosage: 5 TABLETS 1/WEEK BY MOUTH
     Route: 048
     Dates: start: 20131004, end: 20130120
  2. HUMIRA PEN [Concomitant]
  3. TUMS [Concomitant]
     Dosage: 2

REACTIONS (7)
  - Paranoia [None]
  - Sleep terror [None]
  - Screaming [None]
  - Fear [None]
  - Abnormal behaviour [None]
  - Unevaluable event [None]
  - Family stress [None]
